FAERS Safety Report 5410965-7 (Version None)
Quarter: 2007Q3

REPORT INFORMATION
  Report Type: 
  Country: None (occurrence: None)
  Receive Date: 20070809
  Receipt Date: 20070809
  Transmission Date: 20080115
  Serious: Yes (Hospitalization)
  Sender: FDA-Public Use
  Company Number: None

PATIENT
  Sex: Female
  Weight: 40.5 kg

DRUGS (4)
  1. CYCLOPHOSPHAMIDE [Suspect]
  2. DOXIL [Suspect]
  3. RITUXIMAB (MOAB C2B8 ANTI CD20, CHIMERIC) [Suspect]
  4. VINCRISTINE SULFATE [Suspect]

REACTIONS (7)
  - CHEST DISCOMFORT [None]
  - DIARRHOEA [None]
  - DYSPNOEA [None]
  - LACTOBACILLUS INFECTION [None]
  - NAUSEA [None]
  - STAPHYLOCOCCAL INFECTION [None]
  - VOMITING [None]
